FAERS Safety Report 6121751-7 (Version None)
Quarter: 2009Q1

REPORT INFORMATION
  Report Type: 
  Country: None (occurrence: None)
  Receive Date: 20090317
  Receipt Date: 20090316
  Transmission Date: 20090719
  Serious: Yes (Other)
  Sender: FDA-Public Use
  Company Number: FR-ROXANE LABORATORIES, INC.-2009-RO-00248RO

PATIENT
  Age: 33 Year
  Sex: Male

DRUGS (4)
  1. PREDNISONE TAB [Suspect]
     Indication: SARCOIDOSIS
     Route: 048
  2. AZATHIOPRINE [Suspect]
     Indication: SARCOIDOSIS
  3. METHYLPREDNISOLONE 4MG TAB [Suspect]
     Indication: SARCOIDOSIS
     Route: 042
  4. METHOTREXATE [Concomitant]
     Indication: SARCOIDOSIS

REACTIONS (2)
  - DRUG INTOLERANCE [None]
  - NAUSEA [None]
